FAERS Safety Report 14048750 (Version 3)
Quarter: 2018Q1

REPORT INFORMATION
  Report Type: Spontaneous
  Country: GB (occurrence: GB)
  Receive Date: 20171005
  Receipt Date: 20180215
  Transmission Date: 20180508
  Serious: Yes (Hospitalization, Congenital Anomaly, Other)
  Sender: FDA-Public Use
  Company Number: GB-ABBVIE-17P-167-2122154-00

PATIENT
  Sex: Male

DRUGS (1)
  1. EPILIM [Suspect]
     Active Substance: VALPROATE SODIUM
     Indication: MATERNAL EXPOSURE TIMING UNSPECIFIED
     Route: 064

REACTIONS (17)
  - Respiratory disorder [Not Recovered/Not Resolved]
  - Dyspnoea [Unknown]
  - Motor developmental delay [Unknown]
  - Temperature regulation disorder [Unknown]
  - Foetal exposure during pregnancy [Unknown]
  - Metabolic disorder [Not Recovered/Not Resolved]
  - Foetal anticonvulsant syndrome [Unknown]
  - Dysmorphism [Unknown]
  - Autism spectrum disorder [Not Recovered/Not Resolved]
  - Poor sucking reflex [Unknown]
  - Premature baby [Unknown]
  - Developmental delay [Unknown]
  - Speech disorder developmental [Not Recovered/Not Resolved]
  - Poor feeding infant [Unknown]
  - Loss of personal independence in daily activities [Unknown]
  - Chromosomal deletion [Unknown]
  - Emotional disorder [Unknown]
